FAERS Safety Report 9173613 (Version 1)
Quarter: 2013Q1

REPORT INFORMATION
  Report Type: Spontaneous
  Country: GR (occurrence: None)
  Receive Date: 20130318
  Receipt Date: 20130318
  Transmission Date: 20140127
  Serious: Yes (Death, Hospitalization)
  Sender: FDA-Public Use
  Company Number: 2013/060

PATIENT
  Age: 72 Year
  Sex: Female

DRUGS (5)
  1. AMLODIPINE BESYLATE [Suspect]
     Indication: HYPERTENSION
  2. LITHIUM CARBONATE [Concomitant]
  3. ESCITALOPRAM OXALATE [Concomitant]
  4. BUSPIRONE HYDROCHLORIDE [Concomitant]
  5. IRBESARTAN [Concomitant]

REACTIONS (3)
  - Neuroleptic malignant syndrome [None]
  - Acute respiratory distress syndrome [None]
  - Cardio-respiratory arrest [None]
